FAERS Safety Report 7419363-8 (Version None)
Quarter: 2011Q2

REPORT INFORMATION
  Report Type: 
  Country: None (occurrence: None)
  Receive Date: 20110415
  Receipt Date: 20110406
  Transmission Date: 20111010
  Serious: Yes (Hospitalization)
  Sender: FDA-Public Use
  Company Number: US-ASTRAZENECA-2009UW17612

PATIENT
  Age: 71 Year
  Sex: Female
  Weight: 63.5 kg

DRUGS (7)
  1. ALBUTEROL [Concomitant]
  2. IPRATROPIUM BROMIDE [Concomitant]
  3. TRANXENE [Concomitant]
     Indication: ANXIETY
  4. PULMICORT RESPULES [Suspect]
     Indication: CHRONIC OBSTRUCTIVE PULMONARY DISEASE
     Route: 055
     Dates: start: 20070601
  5. BONIVA [Concomitant]
     Indication: OSTEOPOROSIS
  6. RECLAST [Concomitant]
     Indication: OSTEOPOROSIS
  7. HYDROCHLOROTHIAZIDE [Concomitant]
     Indication: HYPERTENSION

REACTIONS (6)
  - CHRONIC OBSTRUCTIVE PULMONARY DISEASE [None]
  - DRUG INEFFECTIVE [None]
  - NAUSEA [None]
  - OSTEOPOROSIS [None]
  - SALIVARY GLAND PAIN [None]
  - THROAT IRRITATION [None]
